FAERS Safety Report 23257624 (Version 1)
Quarter: 2023Q4

REPORT INFORMATION
  Report Type: Other
  Country: US (occurrence: None)
  Receive Date: 20231204
  Receipt Date: 20231204
  Transmission Date: 20240110
  Serious: Yes (Other)
  Sender: FDA-Public Use
  Company Number: US-ROCHE-3466706

PATIENT

DRUGS (3)
  1. OBINUTUZUMAB [Suspect]
     Active Substance: OBINUTUZUMAB
     Indication: Follicular lymphoma
     Dosage: (+/- 2 DAYS), AND 15 (+/-2 DAYS) OF CYCLE 1, DAY 1 (+/- 7 DAYS) OF CYCLES 2 THROUGH 6, THEN ON DAY 1
     Route: 042
  2. VENETOCLAX [Suspect]
     Active Substance: VENETOCLAX
     Indication: Follicular lymphoma
     Dosage: ON DAY 4 (+/- 2 DAYS) OF CYCLE 1 CONTINUED .ONCE DAILY THROUGH CYCLE 24 WITHOUT A RAMP UP.
     Route: 065
  3. IBRUTINIB [Suspect]
     Active Substance: IBRUTINIB
     Indication: Follicular lymphoma
     Dosage: ON DAY 1 (+/- 2 DAYS) OF CYCLE 1 AND CONTINUED DAILY THROUGH CYCLE 24. CYCLES WERE 28 DAYS
     Route: 065

REACTIONS (6)
  - Neutropenia [Unknown]
  - Thrombocytopenia [Unknown]
  - Fatigue [Unknown]
  - Lymphopenia [Unknown]
  - Diarrhoea [Unknown]
  - Rash [Unknown]
